FAERS Safety Report 8081591-9 (Version None)
Quarter: 2012Q1

REPORT INFORMATION
  Report Type: 
  Country: None (occurrence: None)
  Receive Date: 20120130
  Receipt Date: 20120127
  Transmission Date: 20120608
  Serious: Yes (Hospitalization)
  Sender: FDA-Public Use
  Company Number: IT-BAYER-2012-009017

PATIENT
  Age: 62 Year
  Sex: Male

DRUGS (6)
  1. ASPIRIN [Suspect]
     Indication: HYPERTENSIVE HEART DISEASE
     Dosage: 100 MG, QD
     Route: 048
     Dates: start: 20080101, end: 20110926
  2. MEMAC [Concomitant]
     Route: 048
  3. LISINOPRIL [Suspect]
     Indication: HYPERTENSION
     Dosage: DAILY DOSE 5 MG
     Dates: start: 20080101, end: 20110926
  4. ADALAT [Suspect]
     Dosage: DAILY DOSE 100 MG
     Route: 048
     Dates: start: 20080101, end: 20110926
  5. PANTOPRAZOLE [Concomitant]
  6. CYMBALTA [Concomitant]
     Route: 048

REACTIONS (3)
  - PARALYSIS [None]
  - LIP OEDEMA [None]
  - DYSARTHRIA [None]
